FAERS Safety Report 5466303-7 (Version None)
Quarter: 2007Q3

REPORT INFORMATION
  Report Type: 
  Country: None (occurrence: None)
  Receive Date: 20070919
  Receipt Date: 20070824
  Transmission Date: 20080115
  Serious: Yes (Hospitalization)
  Sender: FDA-Public Use
  Company Number: AU200708005571

PATIENT
  Age: 67 Year
  Sex: Male
  Weight: 78.7 kg

DRUGS (11)
  1. ETOPOSIDE [Suspect]
     Indication: LUNG NEOPLASM MALIGNANT
     Dosage: 196 MG, EVERY 21 DAYS INTRAVENOUS
     Route: 042
     Dates: start: 20070821
  2. CARBOPLATIN [Suspect]
     Indication: LUNG NEOPLASM MALIGNANT
     Dosage: 528 MG, EVERY 21 DAYS INTRAVENOUS
     Route: 042
     Dates: start: 20070821
  3. WARFARIN SODIUM [Concomitant]
  4. OXYCODONE HCL [Concomitant]
  5. ACETAMINOPHEN [Concomitant]
  6. PERINDOPRIL ERBUMINE [Concomitant]
  7. DIGOXIN [Concomitant]
  8. VERAPAMIL [Concomitant]
  9. SERETIDE (FLUTICASONE PROPIONATE, SALMETEROL XINAFOATE) [Concomitant]
  10. TROPISETRON (TROPISETRON) [Concomitant]
  11. DEXAMETHASONE TAB [Concomitant]

REACTIONS (4)
  - HAEMOPTYSIS [None]
  - INTERNATIONAL NORMALISED RATIO INCREASED [None]
  - NEUTROPHIL COUNT INCREASED [None]
  - WHITE BLOOD CELL COUNT INCREASED [None]
